FAERS Safety Report 24443779 (Version 4)
Quarter: 2025Q1

REPORT INFORMATION
  Report Type: Spontaneous
  Country: FR (occurrence: FR)
  Receive Date: 20241016
  Receipt Date: 20250102
  Transmission Date: 20250409
  Serious: Yes (Other)
  Sender: PFIZER
  Company Number: FR-PFIZER INC-202400276157

PATIENT
  Age: 64 Year
  Sex: Female

DRUGS (4)
  1. COMIRNATY (TOZINAMERAN) [Suspect]
     Active Substance: TOZINAMERAN
     Indication: COVID-19 immunisation
  2. NOVATREX (METHOTREXATE) [Suspect]
     Active Substance: METHOTREXATE SODIUM
     Indication: Rheumatoid arthritis
     Dosage: 8 TABLETS, DAILY
  3. NOVATREX (METHOTREXATE) [Suspect]
     Active Substance: METHOTREXATE SODIUM
     Dosage: 6 TABLETS, DAILY
  4. NOVATREX (METHOTREXATE) [Suspect]
     Active Substance: METHOTREXATE SODIUM
     Dosage: 7 TABLETS, DAILY

REACTIONS (9)
  - Dacryostenosis acquired [Unknown]
  - Dysplasia [Unknown]
  - Eye pain [Recovering/Resolving]
  - Ocular neoplasm [Recovered/Resolved]
  - Eye injury [Not Recovered/Not Resolved]
  - Osteoarthritis [Unknown]
  - Paraesthesia [Unknown]
  - Diarrhoea [Unknown]
  - Apraxia [Unknown]

NARRATIVE: CASE EVENT DATE: 20231201
